FAERS Safety Report 4796632-1 (Version None)
Quarter: 2005Q3

REPORT INFORMATION
  Report Type: 
  Country: None (occurrence: None)
  Receive Date: 20050916
  Receipt Date: 20041122
  Transmission Date: 20060218
  Serious: Yes (Other)
  Sender: FDA-Public Use
  Company Number: US-JNJFOC-20041105942

PATIENT
  Sex: Female

DRUGS (1)
  1. TOPAMAX [Suspect]
     Indication: MIGRAINE
     Dosage: 25 MG, 1 IN 1 DAY, ORAL; 50 MG, 1 IN 1 DAY, ORAL
     Route: 048

REACTIONS (4)
  - BIOPSY STOMACH [None]
  - GASTRITIS [None]
  - GASTROOESOPHAGITIS [None]
  - MIGRAINE [None]
